FAERS Safety Report 7871471-3 (Version None)
Quarter: 2011Q4

REPORT INFORMATION
  Report Type: 
  Country: None (occurrence: None)
  Receive Date: 20111029
  Receipt Date: 20110302
  Transmission Date: 20120403
  Serious: No
  Sender: FDA-Public Use
  Company Number: US-AMGEN-USASP2011011922

PATIENT
  Sex: Female

DRUGS (1)
  1. ENBREL [Suspect]
     Indication: NEURALGIA
     Dosage: 50 MG, QWK
     Dates: start: 20110119

REACTIONS (5)
  - INFLUENZA LIKE ILLNESS [None]
  - INJECTION SITE STREAKING [None]
  - FATIGUE [None]
  - INJECTION SITE HAEMATOMA [None]
  - INJECTION SITE ERYTHEMA [None]
